FAERS Safety Report 24443923 (Version 2)
Quarter: 2024Q4

REPORT INFORMATION
  Report Type: Report from Study
  Country: US (occurrence: US)
  Receive Date: 20241016
  Receipt Date: 20241017
  Transmission Date: 20250115
  Serious: No
  Sender: ROCHE
  Company Number: US-ROCHE-2669317

PATIENT
  Age: 40 Year
  Sex: Female

DRUGS (34)
  1. RITUXAN [Suspect]
     Active Substance: RITUXIMAB
     Indication: Polymyositis
     Dosage: 1000 MG IV DAY 1 AND DAY 15 REPEAT 6 MONTH, 8 VIALS, DATE OF TREATMENT: 17/MAR/2020, 09/JUN/2021
     Route: 041
     Dates: start: 20210526
  2. RITUXAN [Suspect]
     Active Substance: RITUXIMAB
     Indication: Back pain
  3. RITUXAN [Suspect]
     Active Substance: RITUXIMAB
     Indication: Dysphagia
  4. RITUXAN [Suspect]
     Active Substance: RITUXIMAB
     Indication: Dyspnoea
  5. RITUXAN [Suspect]
     Active Substance: RITUXIMAB
     Indication: Embolism arterial
  6. RITUXAN [Suspect]
     Active Substance: RITUXIMAB
     Indication: Headache
  7. RITUXAN [Suspect]
     Active Substance: RITUXIMAB
     Indication: Insomnia
  8. RITUXAN [Suspect]
     Active Substance: RITUXIMAB
     Indication: Tachycardia
  9. RITUXAN [Suspect]
     Active Substance: RITUXIMAB
     Indication: Type 2 diabetes mellitus
  10. RITUXAN [Suspect]
     Active Substance: RITUXIMAB
     Indication: Fibromyalgia
  11. RITUXAN [Suspect]
     Active Substance: RITUXIMAB
     Indication: Impaired gastric emptying
  12. RITUXAN [Suspect]
     Active Substance: RITUXIMAB
     Indication: Diaphragmatic hernia
  13. RITUXAN [Suspect]
     Active Substance: RITUXIMAB
     Indication: Nephrolithiasis
  14. RITUXAN [Suspect]
     Active Substance: RITUXIMAB
     Indication: Migraine
  15. CELLCEPT [Suspect]
     Active Substance: MYCOPHENOLATE MOFETIL
     Indication: Polymyositis
     Route: 065
  16. CALCIUM CITRATE [Concomitant]
     Active Substance: CALCIUM CITRATE
  17. CLONIDINE HYDROCHLORIDE [Concomitant]
     Active Substance: CLONIDINE HYDROCHLORIDE
  18. DIPHENHYDRAMINE HYDROCHLORIDE [Concomitant]
     Active Substance: DIPHENHYDRAMINE HYDROCHLORIDE
  19. AIMOVIG [Concomitant]
     Active Substance: ERENUMAB-AOOE
  20. GABAPENTIN [Concomitant]
     Active Substance: GABAPENTIN
  21. MAGNESIUM OXIDE [Concomitant]
     Active Substance: MAGNESIUM OXIDE
  22. METOPROLOL SUCCINATE [Concomitant]
     Active Substance: METOPROLOL SUCCINATE
  23. SAVELLA [Concomitant]
     Active Substance: MILNACIPRAN HYDROCHLORIDE
  24. ONDANSETRON [Concomitant]
     Active Substance: ONDANSETRON
  25. OXYBUTYNIN [Concomitant]
     Active Substance: OXYBUTYNIN
  26. SERTRALINE [Concomitant]
     Active Substance: SERTRALINE HYDROCHLORIDE
  27. SODIUM CHLORIDE [Concomitant]
     Active Substance: SODIUM CHLORIDE
  28. SPIRONOLACTONE [Concomitant]
     Active Substance: SPIRONOLACTONE
  29. SUMATRIPTAN [Concomitant]
     Active Substance: SUMATRIPTAN
  30. ZANAFLEX [Concomitant]
     Active Substance: TIZANIDINE HYDROCHLORIDE
  31. TRIAMCINOLONE ACETONIDE [Concomitant]
     Active Substance: TRIAMCINOLONE ACETONIDE
  32. ZOLPIDEM TARTRATE [Concomitant]
     Active Substance: ZOLPIDEM TARTRATE
  33. CETIRIZINE HYDROCHLORIDE [Concomitant]
     Active Substance: CETIRIZINE HYDROCHLORIDE
  34. DOXYCYCLINE [Concomitant]
     Active Substance: DOXYCYCLINE

REACTIONS (7)
  - Off label use [Unknown]
  - Muscular weakness [Unknown]
  - COVID-19 [Unknown]
  - Malaise [Unknown]
  - Sinus congestion [Unknown]
  - Back pain [Unknown]
  - Abdominal discomfort [Unknown]
